FAERS Safety Report 7583708-9 (Version None)
Quarter: 2011Q2

REPORT INFORMATION
  Report Type: 
  Country: None (occurrence: None)
  Receive Date: 20110630
  Receipt Date: 20110622
  Transmission Date: 20111010
  Serious: Yes (Death)
  Sender: FDA-Public Use
  Company Number: B0728793A

PATIENT
  Sex: Female
  Weight: 52 kg

DRUGS (4)
  1. XELODA [Suspect]
     Dosage: 1800MG PER DAY
     Route: 048
     Dates: start: 20110309, end: 20110317
  2. FUROSEMIDE [Concomitant]
     Indication: CARDIAC FAILURE
     Route: 048
     Dates: start: 20110305, end: 20110316
  3. HERCEPTIN [Suspect]
  4. TYKERB [Suspect]
     Indication: BREAST CANCER
     Dosage: 1250MG PER DAY
     Route: 048
     Dates: start: 20110309, end: 20110317

REACTIONS (1)
  - CARDIAC FAILURE [None]
